FAERS Safety Report 11178109 (Version 2)
Quarter: 2015Q4

REPORT INFORMATION
  Report Type: Report from Study
  Country: JP (occurrence: JP)
  Receive Date: 20150610
  Receipt Date: 20151111
  Transmission Date: 20160304
  Serious: Yes (Life-Threatening)
  Sender: FDA-Public Use
  Company Number: JP-HORIZON-BUP-0007-2015

PATIENT
  Age: 9 Month
  Sex: Female
  Weight: 7.84 kg

DRUGS (6)
  1. URSO [Concomitant]
     Active Substance: URSODIOL
     Route: 048
     Dates: start: 20140122, end: 20140210
  2. JUVELA [Concomitant]
     Active Substance: .ALPHA.-TOCOPHEROL\RETINOL
     Indication: PROPHYLAXIS
     Route: 048
     Dates: start: 20140122, end: 20140323
  3. ALFAROL [Concomitant]
     Active Substance: ALFACALCIDOL
     Route: 048
     Dates: start: 20140131, end: 20140323
  4. BUPHENYL [Suspect]
     Active Substance: SODIUM PHENYLBUTYRATE
     Indication: PROGRESSIVE FAMILIAL INTRAHEPATIC CHOLESTASIS
     Dosage: 3.2 G FOUR TIMES DAILY
     Route: 048
     Dates: start: 20140311, end: 20140323
  5. CHOCOLA [Concomitant]
     Indication: PROPHYLAXIS
     Route: 048
     Dates: start: 20140122, end: 20140323
  6. PANVITAN [Concomitant]
     Indication: PROPHYLAXIS
     Route: 048
     Dates: start: 20140122, end: 20140323

REACTIONS (2)
  - Hepatic failure [Unknown]
  - Off label use [Recovered/Resolved]

NARRATIVE: CASE EVENT DATE: 20140323
